FAERS Safety Report 6327994-1 (Version None)
Quarter: 2009Q3

REPORT INFORMATION
  Report Type: 
  Country: None (occurrence: None)
  Receive Date: 20090825
  Receipt Date: 20080926
  Transmission Date: 20100115
  Serious: No
  Sender: FDA-Public Use
  Company Number: US-ABBOTT-08P-163-0478779-00

PATIENT
  Sex: Male
  Weight: 113.5 kg

DRUGS (3)
  1. SYNTHROID [Suspect]
     Indication: HYPOTHYROIDISM
     Route: 048
     Dates: start: 20080922
  2. VENLAFAXINE HCL [Concomitant]
     Indication: DEPRESSION
     Route: 048
  3. CELECOXIB [Concomitant]
     Indication: ARTHRITIS
     Route: 048

REACTIONS (2)
  - DYSPNOEA [None]
  - INFLUENZA LIKE ILLNESS [None]
